FAERS Safety Report 12367410 (Version 3)
Quarter: 2016Q2

REPORT INFORMATION
  Report Type: Spontaneous
  Country: IT (occurrence: IT)
  Receive Date: 20160513
  Receipt Date: 20160603
  Transmission Date: 20160815
  Serious: Yes (Hospitalization)
  Sender: FDA-Public Use
  Company Number: IT-TEVA-659490ACC

PATIENT
  Age: 36 Year
  Sex: Female

DRUGS (1)
  1. NICARDIPINE HYDROCHLORIDE. [Suspect]
     Active Substance: NICARDIPINE HYDROCHLORIDE
     Indication: TOCOLYSIS
     Dosage: 3 MILLIGRAM DAILY;
     Route: 042

REACTIONS (3)
  - Acute pulmonary oedema [Unknown]
  - Exposure during pregnancy [Unknown]
  - Off label use of device [Unknown]
